FAERS Safety Report 15198180 (Version 1)
Quarter: 2018Q3

REPORT INFORMATION
  Report Type: Spontaneous
  Country: PL (occurrence: PL)
  Receive Date: 20180725
  Receipt Date: 20180725
  Transmission Date: 20181010
  Serious: Yes (Other)
  Sender: FDA-Public Use
  Company Number: PHHY2018PL050041

PATIENT
  Sex: Male

DRUGS (8)
  1. BENDAMUSTINE HYDROCHLORIDE. [Suspect]
     Active Substance: BENDAMUSTINE HYDROCHLORIDE
     Indication: CHRONIC LYMPHOCYTIC LEUKAEMIA
     Dosage: UNK UNK, 6 CYCLES
     Route: 065
     Dates: start: 20110601
  2. DEXAMETHASON [Suspect]
     Active Substance: DEXAMETHASONE
     Indication: CHRONIC LYMPHOCYTIC LEUKAEMIA
     Dosage: UNK UNK, 6 CYCLES
     Route: 065
     Dates: start: 20120903
  3. RITUXIMAB. [Suspect]
     Active Substance: RITUXIMAB
     Indication: CHRONIC LYMPHOCYTIC LEUKAEMIA
     Dosage: UNK UNK, 6 CYCLES
     Route: 065
     Dates: start: 20110601
  4. RITUXIMAB. [Suspect]
     Active Substance: RITUXIMAB
     Dosage: UNK UNK, 6 CYCLES
     Route: 065
     Dates: start: 20120903
  5. IBRUTINIB [Suspect]
     Active Substance: IBRUTINIB
     Indication: CHRONIC LYMPHOCYTIC LEUKAEMIA
     Dosage: 240 MG, UNK
     Route: 065
  6. OFATUMUMAB [Suspect]
     Active Substance: OFATUMUMAB
     Indication: CHRONIC LYMPHOCYTIC LEUKAEMIA
     Dosage: UNK UNK, 8 CYCLES
     Route: 065
     Dates: start: 201210, end: 201301
  7. IBRUTINIB [Suspect]
     Active Substance: IBRUTINIB
     Dosage: 420 MG, UNK
     Route: 065
  8. CYCLOPHOSPHAMIDE. [Suspect]
     Active Substance: CYCLOPHOSPHAMIDE
     Indication: CHRONIC LYMPHOCYTIC LEUKAEMIA
     Dosage: UNK UNK, 6 CYCLES
     Route: 065
     Dates: start: 20120903

REACTIONS (7)
  - Sinusitis [Recovered/Resolved]
  - Upper respiratory tract infection [Recovered/Resolved]
  - Epstein-Barr viraemia [Unknown]
  - Atrial fibrillation [Recovered/Resolved]
  - Haemorrhage [Unknown]
  - Cytomegalovirus viraemia [Recovered/Resolved]
  - Atypical mycobacterial pneumonia [Unknown]

NARRATIVE: CASE EVENT DATE: 201611
